FAERS Safety Report 22210922 (Version 1)
Quarter: 2023Q2

REPORT INFORMATION
  Report Type: Spontaneous
  Country: US (occurrence: None)
  Receive Date: 20230413
  Receipt Date: 20230413
  Transmission Date: 20230722
  Serious: No
  Sender: FDA-Public Use
  Company Number: None

PATIENT
  Age: 76 Year
  Sex: Female

DRUGS (1)
  1. AMBRISENTAN [Suspect]
     Active Substance: AMBRISENTAN
     Indication: Pulmonary hypertension
     Dosage: 10MG QD ORA
     Route: 048
     Dates: start: 20141017

REACTIONS (5)
  - Abdominal pain lower [None]
  - Hyperhidrosis [None]
  - Haematuria [None]
  - Presyncope [None]
  - Infrequent bowel movements [None]

NARRATIVE: CASE EVENT DATE: 20230411
